FAERS Safety Report 5883179-4 (Version None)
Quarter: 2008Q3

REPORT INFORMATION
  Report Type: 
  Country: None (occurrence: None)
  Receive Date: 20080915
  Receipt Date: 20080905
  Transmission Date: 20090109
  Serious: Yes (Hospitalization)
  Sender: FDA-Public Use
  Company Number: PHHO2008US07286

PATIENT
  Sex: Female
  Weight: 74.1 kg

DRUGS (14)
  1. ERL 080A ERL+TAB [Suspect]
     Indication: RENAL TRANSPLANT
     Dosage: 1440 MG, BID
     Route: 048
     Dates: start: 20080526, end: 20080610
  2. ERL 080A ERL+TAB [Suspect]
     Dosage: 1080 MG, BID
     Route: 048
     Dates: start: 20080611
  3. ERL 080A ERL+TAB [Suspect]
     Dosage: 1440 MG / DAY
     Route: 048
     Dates: start: 20080628, end: 20080629
  4. ERL 080A ERL+TAB [Suspect]
     Dosage: 720 MG, BID
     Route: 048
     Dates: start: 20080629
  5. NEORAL [Concomitant]
     Indication: RENAL TRANSPLANT
     Dosage: 150 MG, DAILY
     Route: 048
     Dates: start: 20080528
  6. NEORAL [Concomitant]
     Dosage: 300 MG, DAILY
     Route: 048
     Dates: start: 20080529, end: 20080530
  7. NEORAL [Concomitant]
     Dosage: 350 MG, DAILY
     Route: 048
     Dates: start: 20080531, end: 20080603
  8. NEORAL [Concomitant]
     Dosage: 400 MG, DAILY
     Route: 048
     Dates: start: 20080604, end: 20080604
  9. NEORAL [Concomitant]
     Dosage: 375 MG, DAILY
     Route: 048
     Dates: start: 20080605, end: 20080605
  10. NEORAL [Concomitant]
     Dosage: 175 MG, BID
     Route: 048
  11. PREDNISONE TAB [Concomitant]
     Indication: RENAL TRANSPLANT
     Dosage: 200 MG, DAILY
     Route: 048
     Dates: start: 20080527, end: 20080528
  12. PREDNISONE TAB [Concomitant]
     Dosage: 80 MG, DAILY
     Route: 048
     Dates: start: 20080529, end: 20080529
  13. PREDNISONE TAB [Concomitant]
     Dosage: 30 MG, DAILY
     Dates: start: 20080530, end: 20080604
  14. PREDNISONE TAB [Concomitant]
     Dosage: 10 MG, QD
     Route: 048

REACTIONS (19)
  - ABDOMINAL PAIN [None]
  - ABDOMINAL PAIN LOWER [None]
  - ANXIETY POSTOPERATIVE [None]
  - CATHETER PLACEMENT [None]
  - CHEST PAIN [None]
  - CYTOMEGALOVIRUS ANTIBODY POSITIVE [None]
  - DIARRHOEA [None]
  - DISCOMFORT [None]
  - HEADACHE [None]
  - HYPERTENSION [None]
  - INCISION SITE COMPLICATION [None]
  - INCISION SITE PAIN [None]
  - MALAISE [None]
  - NAUSEA [None]
  - PYREXIA [None]
  - SECRETION DISCHARGE [None]
  - SEROMA [None]
  - URINARY TRACT INFECTION [None]
  - VOMITING [None]
